FAERS Safety Report 14840311 (Version 1)
Quarter: 2018Q2

REPORT INFORMATION
  Report Type: Spontaneous
  Country: FR (occurrence: FR)
  Receive Date: 20180503
  Receipt Date: 20180503
  Transmission Date: 20180711
  Serious: Yes (Other)
  Sender: FDA-Public Use
  Company Number: FR-MERCK KGAA-2047053

PATIENT
  Age: 59 Year
  Sex: Female

DRUGS (1)
  1. NOVOTHYROX [Suspect]
     Active Substance: LEVOTHYROXINE SODIUM
     Indication: POST PROCEDURAL HYPOTHYROIDISM
     Dates: start: 201706

REACTIONS (17)
  - Abdominal pain [None]
  - Moaning [None]
  - Fatigue [None]
  - Dizziness [None]
  - Amnesia [None]
  - Limb discomfort [None]
  - Asthenia [None]
  - Somnolence [None]
  - Frustration tolerance decreased [None]
  - Transient ischaemic attack [None]
  - Arthralgia [None]
  - Blood thyroid stimulating hormone increased [Recovered/Resolved]
  - Alopecia [None]
  - Diarrhoea [None]
  - Myalgia [None]
  - Cognitive disorder [None]
  - Social avoidant behaviour [None]

NARRATIVE: CASE EVENT DATE: 201708
